FAERS Safety Report 11106394 (Version 1)
Quarter: 2015Q2

REPORT INFORMATION
  Report Type: Spontaneous
  Country: US (occurrence: None)
  Receive Date: 20150511
  Receipt Date: 20150511
  Transmission Date: 20150821
  Serious: Yes (Hospitalization)
  Sender: FDA-Public Use
  Company Number: None

PATIENT
  Age: 63 Year
  Sex: Male
  Weight: 112.04 kg

DRUGS (12)
  1. HYDROCODONE [Concomitant]
     Active Substance: HYDROCODONE
  2. METFORMIN [Concomitant]
     Active Substance: METFORMIN HYDROCHLORIDE
  3. TIZANIDINE (TIZANIDINE) [Concomitant]
     Active Substance: TIZANIDINE
  4. BABY ASPIRIN [Concomitant]
     Active Substance: ASPIRIN
  5. LOSARTAN [Concomitant]
     Active Substance: LOSARTAN
  6. FISH OIL [Concomitant]
     Active Substance: FISH OIL
  7. NORVASC [Concomitant]
     Active Substance: AMLODIPINE BESYLATE
  8. FENTANYL TRANSDERMAL SYSTEM [Concomitant]
     Active Substance: FENTANYL
  9. TESTOSTERONE CYPIONATE. [Concomitant]
     Active Substance: TESTOSTERONE CYPIONATE
  10. KLONOPIN [Concomitant]
     Active Substance: CLONAZEPAM
  11. COREG [Suspect]
     Active Substance: CARVEDILOL
     Indication: HYPERTENSION
     Dosage: 1 PILLS TWICE DAILY TAKEN BY MOUTH
     Route: 048
  12. PROSCAR [Concomitant]
     Active Substance: FINASTERIDE

REACTIONS (3)
  - Weight decreased [None]
  - Pancreatitis [None]
  - Cholecystectomy [None]

NARRATIVE: CASE EVENT DATE: 20150420
